FAERS Safety Report 8252399-6 (Version None)
Quarter: 2012Q2

REPORT INFORMATION
  Report Type: 
  Country: None (occurrence: None)
  Receive Date: 20120402
  Receipt Date: 20110701
  Transmission Date: 20120825
  Serious: No
  Sender: FDA-Public Use
  Company Number: US-ABBOTT-11P-163-0837014-00

PATIENT
  Age: 60 Year
  Sex: Male

DRUGS (9)
  1. MICARDIS HCT [Concomitant]
     Indication: HYPERTENSION
     Dosage: 80/20MG
     Route: 048
  2. HYDROCODONE BITARTRATE [Concomitant]
     Indication: PRODUCT USED FOR UNKNOWN INDICATION
     Dosage: AT HOUR OF SLEEP
     Route: 048
  3. ASPIRIN [Concomitant]
     Indication: PRODUCT USED FOR UNKNOWN INDICATION
     Route: 048
  4. ANDROGEL [Suspect]
     Dosage: AS REQUIRED
     Route: 061
     Dates: start: 20070101
  5. ANDROGEL [Suspect]
     Dosage: ONCE PATIENT INCREASED DOSE.
     Route: 061
     Dates: start: 20110701, end: 20110701
  6. ANDROGEL [Suspect]
     Indication: BLOOD TESTOSTERONE DECREASED
     Dosage: TAKING MEDICATION OFF AND ON AS REQUIRED, NOT ON REGULAR BASIS.
     Route: 061
     Dates: start: 20040101, end: 20060101
  7. ANDROGEL [Suspect]
     Dosage: AS REQUIRED
     Route: 061
     Dates: start: 20110101, end: 20110701
  8. FLEXERIL [Concomitant]
     Indication: PRODUCT USED FOR UNKNOWN INDICATION
     Route: 048
  9. TESTOSTERONE [Concomitant]
     Indication: BLOOD TESTOSTERONE DECREASED
     Route: 030
     Dates: start: 20040101

REACTIONS (6)
  - MIDDLE INSOMNIA [None]
  - INCORRECT DOSE ADMINISTERED [None]
  - HYPERHIDROSIS [None]
  - HOT FLUSH [None]
  - PYREXIA [None]
  - DRUG INEFFECTIVE [None]
